FAERS Safety Report 4632622-7 (Version None)
Quarter: 2005Q2

REPORT INFORMATION
  Report Type: 
  Country: None (occurrence: None)
  Receive Date: 20050331
  Receipt Date: 20040817
  Transmission Date: 20051028
  Serious: Yes (Other)
  Sender: FDA-Public Use
  Company Number: 200414049BCC

PATIENT
  Age: 43 Year
  Sex: Male
  Weight: 122.4712 kg

DRUGS (1)
  1. ALEVE [Suspect]
     Indication: SHOULDER PAIN
     Dosage: 3520 MG, TOTAL DAILY, ORAL
     Route: 048
     Dates: start: 20040816

REACTIONS (2)
  - DIARRHOEA HAEMORRHAGIC [None]
  - HAEMATEMESIS [None]
